FAERS Safety Report 9186086 (Version 1)
Quarter: 2013Q1

REPORT INFORMATION
  Report Type: Report from Study
  Country: AT (occurrence: AT)
  Receive Date: 20130325
  Receipt Date: 20130325
  Transmission Date: 20140127
  Serious: Yes (Death)
  Sender: FDA-Public Use
  Company Number: AT-ROCHE-1204134

PATIENT
  Sex: Female

DRUGS (8)
  1. XELODA [Suspect]
     Indication: BREAST CANCER METASTATIC
     Route: 065
     Dates: start: 20061125, end: 20061208
  2. XELODA [Suspect]
     Route: 065
     Dates: start: 20061209, end: 20061229
  3. XELODA [Suspect]
     Route: 065
     Dates: start: 20070101, end: 20070121
  4. XELODA [Suspect]
     Route: 065
     Dates: start: 20070122, end: 20070211
  5. XELODA [Suspect]
     Route: 065
     Dates: start: 20070212, end: 20070304
  6. XELODA [Suspect]
     Route: 065
     Dates: start: 20070305, end: 20070325
  7. XELODA [Suspect]
     Route: 065
     Dates: start: 20070326, end: 20070415
  8. XELODA [Suspect]
     Route: 065
     Dates: start: 20070416, end: 20070506

REACTIONS (1)
  - Death [Fatal]
